FAERS Safety Report 8394672-7 (Version None)
Quarter: 2012Q2

REPORT INFORMATION
  Report Type: 
  Country: None (occurrence: None)
  Receive Date: 20120530
  Receipt Date: 20120521
  Transmission Date: 20120825
  Serious: Yes (Hospitalization, Other)
  Sender: FDA-Public Use
  Company Number: US-VERTEX PHARMACEUTICALS INC.-AE-2012-003713

PATIENT
  Sex: Female
  Weight: 113.5 kg

DRUGS (6)
  1. PEGASYS [Concomitant]
     Indication: HEPATITIS C
     Route: 058
     Dates: start: 20120202
  2. COPEGUS [Concomitant]
     Indication: HEPATITIS C
     Route: 048
     Dates: start: 20120202
  3. INCIVEK [Suspect]
     Indication: HEPATITIS C
     Route: 048
     Dates: start: 20120202
  4. PROCARDIA [Concomitant]
     Indication: HYPERTENSION
     Route: 048
  5. WELLBUTRIN [Concomitant]
     Indication: DEPRESSION
     Route: 048
  6. ASPIRIN [Concomitant]
     Route: 048

REACTIONS (7)
  - PNEUMONIA [None]
  - OEDEMA PERIPHERAL [None]
  - DYSPNOEA [None]
  - ERUCTATION [None]
  - DYSPHAGIA [None]
  - NO THERAPEUTIC RESPONSE [None]
  - NAUSEA [None]
